FAERS Safety Report 5933225-4 (Version None)
Quarter: 2008Q4

REPORT INFORMATION
  Report Type: 
  Country: None (occurrence: None)
  Receive Date: 20081024
  Receipt Date: 20060404
  Transmission Date: 20090506
  Serious: Yes (Other)
  Sender: FDA-Public Use
  Company Number: 2006AL001990

PATIENT
  Age: 35 Year
  Sex: Female

DRUGS (9)
  1. FLUOXETINE [Suspect]
     Dosage: PO
     Route: 048
  2. MULTIRET FOLIC 500 TABLETS (ATLLC) (MULTIRET FOLIC 500 TABLETS (ATLLC) [Suspect]
  3. HUMIRA [Concomitant]
  4. DIHYDROCODEINE BITARTRATE INJ [Concomitant]
  5. FERROUS SULFATE TAB [Concomitant]
  6. ALENDRONATE SODIUM [Concomitant]
  7. MORPHINE SULFATE [Concomitant]
  8. AZATHIOPRINE [Concomitant]
  9. PREDNISOLONE [Concomitant]

REACTIONS (1)
  - OSTEOMYELITIS [None]
